FAERS Safety Report 6974625-3 (Version None)
Quarter: 2010Q3

REPORT INFORMATION
  Report Type: 
  Country: None (occurrence: None)
  Receive Date: 20100909
  Receipt Date: 20081208
  Transmission Date: 20110219
  Serious: No
  Sender: FDA-Public Use
  Company Number: US-WYE-H07136908

PATIENT
  Sex: Male
  Weight: 71.73 kg

DRUGS (6)
  1. PRISTIQ [Suspect]
     Indication: DEPRESSION
     Route: 048
     Dates: start: 20081201, end: 20081204
  2. PRISTIQ [Suspect]
     Indication: ANXIETY
  3. ASPIRIN [Concomitant]
  4. METOPROLOL TARTRATE [Concomitant]
  5. SYNTHROID [Concomitant]
  6. SIMVASTATIN [Concomitant]

REACTIONS (2)
  - BURNING SENSATION [None]
  - HEADACHE [None]
